FAERS Safety Report 25283400 (Version 1)
Quarter: 2025Q2

REPORT INFORMATION
  Report Type: Spontaneous
  Country: US (occurrence: None)
  Receive Date: 20250508
  Receipt Date: 20250508
  Transmission Date: 20250716
  Serious: Yes (Hospitalization)
  Sender: FDA-CTU
  Company Number: None

PATIENT
  Age: 69 Year
  Sex: Male

DRUGS (1)
  1. PIRFENIDONE [Suspect]
     Active Substance: PIRFENIDONE
     Indication: Interstitial lung disease
     Dosage: 801 MG TID
     Dates: start: 20240514

REACTIONS (7)
  - Headache [None]
  - Eczema [None]
  - Rash [None]
  - Arthralgia [None]
  - Dyspnoea exertional [None]
  - Pneumonia [None]
  - Vision blurred [None]
